FAERS Safety Report 8534846-5 (Version None)
Quarter: 2012Q3

REPORT INFORMATION
  Report Type: 
  Country: None (occurrence: None)
  Receive Date: 20120724
  Receipt Date: 20120720
  Transmission Date: 20120928
  Serious: Yes (Hospitalization, Other)
  Sender: FDA-Public Use
  Company Number: DK-ABBOTT-12P-044-0950820-00

PATIENT
  Age: 3 Year
  Sex: Female
  Weight: 15 kg

DRUGS (2)
  1. VALPROATE SODIUM [Suspect]
  2. VALPROATE SODIUM [Suspect]
     Indication: EPILEPSY
     Dosage: 100-150 MG DAILY
     Route: 048

REACTIONS (1)
  - TOXICITY TO VARIOUS AGENTS [None]
